FAERS Safety Report 25022799 (Version 2)
Quarter: 2025Q2

REPORT INFORMATION
  Report Type: Spontaneous
  Country: DE (occurrence: DE)
  Receive Date: 20250228
  Receipt Date: 20250620
  Transmission Date: 20250716
  Serious: Yes (Hospitalization)
  Sender: MYLAN
  Company Number: DE-SANDOZ-SDZ2025DE008925

PATIENT
  Sex: Male

DRUGS (32)
  1. CELECOXIB [Suspect]
     Active Substance: CELECOXIB
     Indication: Product used for unknown indication
     Dosage: 200 MILLIGRAM, QD (200 MG, QD, 7 DAYS PER WEEK)
     Dates: start: 20240304, end: 20240318
  2. CELECOXIB [Suspect]
     Active Substance: CELECOXIB
     Dosage: 200 MILLIGRAM, QD (200 MG, QD, 7 DAYS PER WEEK)
     Route: 065
     Dates: start: 20240304, end: 20240318
  3. CELECOXIB [Suspect]
     Active Substance: CELECOXIB
     Dosage: 200 MILLIGRAM, QD (200 MG, QD, 7 DAYS PER WEEK)
     Route: 065
     Dates: start: 20240304, end: 20240318
  4. CELECOXIB [Suspect]
     Active Substance: CELECOXIB
     Dosage: 200 MILLIGRAM, QD (200 MG, QD, 7 DAYS PER WEEK)
     Dates: start: 20240304, end: 20240318
  5. IBUPROFEN [Suspect]
     Active Substance: IBUPROFEN
     Indication: Product used for unknown indication
     Dates: start: 20080101, end: 20180220
  6. IBUPROFEN [Suspect]
     Active Substance: IBUPROFEN
     Dates: start: 20080101, end: 20180220
  7. IBUPROFEN [Suspect]
     Active Substance: IBUPROFEN
     Route: 065
     Dates: start: 20080101, end: 20180220
  8. IBUPROFEN [Suspect]
     Active Substance: IBUPROFEN
     Route: 065
     Dates: start: 20080101, end: 20180220
  9. IBUPROFEN [Suspect]
     Active Substance: IBUPROFEN
     Dates: start: 20190613, end: 20240704
  10. IBUPROFEN [Suspect]
     Active Substance: IBUPROFEN
     Dates: start: 20190613, end: 20240704
  11. IBUPROFEN [Suspect]
     Active Substance: IBUPROFEN
     Route: 065
     Dates: start: 20190613, end: 20240704
  12. IBUPROFEN [Suspect]
     Active Substance: IBUPROFEN
     Route: 065
     Dates: start: 20190613, end: 20240704
  13. COSENTYX [Suspect]
     Active Substance: SECUKINUMAB
     Indication: Product used for unknown indication
     Dosage: 300 MILLIGRAM, Q28D (300 MG, Q4W)
     Route: 065
     Dates: start: 20180212
  14. COSENTYX [Suspect]
     Active Substance: SECUKINUMAB
     Dosage: 300 MILLIGRAM, Q28D (300 MG, Q4W)
     Dates: start: 20180212
  15. COSENTYX [Suspect]
     Active Substance: SECUKINUMAB
     Dosage: 300 MILLIGRAM, Q28D (300 MG, Q4W)
     Dates: start: 20180212
  16. COSENTYX [Suspect]
     Active Substance: SECUKINUMAB
     Dosage: 300 MILLIGRAM, Q28D (300 MG, Q4W)
     Route: 065
     Dates: start: 20180212
  17. COSENTYX [Suspect]
     Active Substance: SECUKINUMAB
     Route: 065
  18. COSENTYX [Suspect]
     Active Substance: SECUKINUMAB
  19. COSENTYX [Suspect]
     Active Substance: SECUKINUMAB
  20. COSENTYX [Suspect]
     Active Substance: SECUKINUMAB
     Route: 065
  21. ETORICOXIB [Concomitant]
     Active Substance: ETORICOXIB
     Indication: Product used for unknown indication
     Dosage: 180 MILLIGRAM, QD (180 MG, QD, 7 DAYS PER WEEK)
     Dates: start: 20240708
  22. ETORICOXIB [Concomitant]
     Active Substance: ETORICOXIB
     Dosage: 180 MILLIGRAM, QD (180 MG, QD, 7 DAYS PER WEEK)
     Route: 065
     Dates: start: 20240708
  23. ETORICOXIB [Concomitant]
     Active Substance: ETORICOXIB
     Dosage: 180 MILLIGRAM, QD (180 MG, QD, 7 DAYS PER WEEK)
     Route: 065
     Dates: start: 20240708
  24. ETORICOXIB [Concomitant]
     Active Substance: ETORICOXIB
     Dosage: 180 MILLIGRAM, QD (180 MG, QD, 7 DAYS PER WEEK)
     Dates: start: 20240708
  25. ACEMETACIN [Concomitant]
     Active Substance: ACEMETACIN
     Indication: Product used for unknown indication
     Dates: start: 20180319, end: 20180701
  26. ACEMETACIN [Concomitant]
     Active Substance: ACEMETACIN
     Dates: start: 20180319, end: 20180701
  27. ACEMETACIN [Concomitant]
     Active Substance: ACEMETACIN
     Route: 065
     Dates: start: 20180319, end: 20180701
  28. ACEMETACIN [Concomitant]
     Active Substance: ACEMETACIN
     Route: 065
     Dates: start: 20180319, end: 20180701
  29. ACEMETACIN [Concomitant]
     Active Substance: ACEMETACIN
     Dates: start: 20190315, end: 20190530
  30. ACEMETACIN [Concomitant]
     Active Substance: ACEMETACIN
     Dates: start: 20190315, end: 20190530
  31. ACEMETACIN [Concomitant]
     Active Substance: ACEMETACIN
     Route: 065
     Dates: start: 20190315, end: 20190530
  32. ACEMETACIN [Concomitant]
     Active Substance: ACEMETACIN
     Route: 065
     Dates: start: 20190315, end: 20190530

REACTIONS (1)
  - Bursitis [Recovered/Resolved]

NARRATIVE: CASE EVENT DATE: 20240304
